FAERS Safety Report 11975963 (Version 1)
Quarter: 2016Q1

REPORT INFORMATION
  Report Type: Spontaneous
  Country: JP (occurrence: JP)
  Receive Date: 20160129
  Receipt Date: 20160129
  Transmission Date: 20160526
  Serious: Yes (Other)
  Sender: FDA-Public Use
  Company Number: JP-BRISTOL-MYERS SQUIBB COMPANY-13895073

PATIENT
  Sex: Female

DRUGS (1)
  1. ARIPIPRAZOLE. [Suspect]
     Active Substance: ARIPIPRAZOLE
     Indication: SCHIZOPHRENIA
     Dosage: 3 MG, QD
     Route: 048
     Dates: start: 20070620

REACTIONS (3)
  - Pregnancy [Recovered/Resolved]
  - Caesarean section [Unknown]
  - Cephalo-pelvic disproportion [Unknown]
